FAERS Safety Report 9639236 (Version 3)
Quarter: 2013Q4

REPORT INFORMATION
  Report Type: Spontaneous
  Country: JP (occurrence: JP)
  Receive Date: 20131022
  Receipt Date: 20131206
  Transmission Date: 20140711
  Serious: Yes (Other)
  Sender: FDA-Public Use
  Company Number: JP-ROCHE-1281462

PATIENT
  Age: 73 Year
  Sex: Female
  Weight: 42 kg

DRUGS (4)
  1. BONVIVA [Suspect]
     Indication: OSTEOPOROSIS
     Route: 042
     Dates: start: 20130913, end: 20130913
  2. EDIROL [Concomitant]
     Indication: OSTEOPOROSIS
     Route: 048
     Dates: start: 20120901, end: 20130913
  3. BAZEDOXIFENE ACETATE [Concomitant]
     Indication: OSTEOPOROSIS
     Dosage: DRUG REPORTED AS  VIVIANT.
     Route: 048
     Dates: start: 20120901, end: 20130913
  4. ELCITONIN [Concomitant]
     Indication: OSTEOPOROSIS
     Dosage: DOSAGE IS UNCERTAIN.
     Route: 030

REACTIONS (6)
  - Oliguria [Recovered/Resolved]
  - Bone pain [Recovering/Resolving]
  - Myalgia [Recovering/Resolving]
  - Headache [Recovered/Resolved]
  - Dizziness [Recovered/Resolved]
  - Nausea [Recovered/Resolved]
